FAERS Safety Report 18414969 (Version 1)
Quarter: 2020Q4

REPORT INFORMATION
  Report Type: Spontaneous
  Country: US (occurrence: US)
  Receive Date: 20201021
  Receipt Date: 20201021
  Transmission Date: 20210114
  Serious: Yes (Life-Threatening, Other)
  Sender: FDA-Public Use
  Company Number: None

PATIENT
  Age: 70 Year
  Sex: Female
  Weight: 70.31 kg

DRUGS (6)
  1. REPATHA SURE-CLICK [Concomitant]
  2. BAYER 81MG [Concomitant]
  3. COMPOUNDED THYROID [Concomitant]
  4. VITAMIN B12 [Concomitant]
     Active Substance: CYANOCOBALAMIN
  5. NATURE-THROID [Suspect]
     Active Substance: THYROID, PORCINE
     Indication: HYPOTHYROIDISM
     Route: 048
     Dates: start: 20171127
  6. JIGSAW-MAGNESIUM W/SRT [Concomitant]

REACTIONS (16)
  - Vertigo [None]
  - Sensation of foreign body [None]
  - Dry skin [None]
  - Constipation [None]
  - Muscle spasms [None]
  - Cough [None]
  - Blood cholesterol increased [None]
  - Sleep disorder [None]
  - Palpitations [None]
  - Fatigue [None]
  - Product substitution issue [None]
  - Asthenia [None]
  - Dizziness [None]
  - Cerebrovascular accident [None]
  - Atrial fibrillation [None]
  - Vision blurred [None]

NARRATIVE: CASE EVENT DATE: 20180102
